FAERS Safety Report 24393176 (Version 1)
Quarter: 2024Q4

REPORT INFORMATION
  Report Type: Spontaneous
  Country: CN (occurrence: CN)
  Receive Date: 20241003
  Receipt Date: 20241003
  Transmission Date: 20250115
  Serious: Yes (Other)
  Sender: NOVARTIS
  Company Number: CN-002147023-NVSC2024CN192838

PATIENT
  Age: 30 Year
  Sex: Male

DRUGS (2)
  1. OXCARBAZEPINE [Suspect]
     Active Substance: OXCARBAZEPINE
     Indication: Trigeminal neuralgia
     Dosage: 0.300 G, BID
     Route: 048
     Dates: start: 20240906, end: 20240925
  2. LINAGLIPTIN [Concomitant]
     Active Substance: LINAGLIPTIN
     Indication: Diabetes mellitus
     Dosage: 5.000 MG, QD
     Route: 048
     Dates: start: 20240901, end: 20240925

REACTIONS (7)
  - Erythema [Unknown]
  - Papule [Unknown]
  - Pyrexia [Unknown]
  - White blood cell count decreased [Unknown]
  - Blood pressure diastolic [Unknown]
  - Blood pressure systolic increased [Unknown]
  - Off label use [Unknown]

NARRATIVE: CASE EVENT DATE: 20240906
